FAERS Safety Report 6857926-9 (Version None)
Quarter: 2010Q3

REPORT INFORMATION
  Report Type: 
  Country: None (occurrence: None)
  Receive Date: 20100715
  Receipt Date: 20100709
  Transmission Date: 20110219
  Serious: Yes (Hospitalization)
  Sender: FDA-Public Use
  Company Number: RB-06117-2010

PATIENT
  Age: 28 Year
  Sex: Female

DRUGS (1)
  1. SUBOXONE [Suspect]
     Indication: DRUG DEPENDENCE
     Dosage: (8 MG BID SUBLINGUAL), (12 MG SUBLINGUAL)
     Route: 060
     Dates: end: 20050605

REACTIONS (6)
  - ANXIETY [None]
  - CONDITION AGGRAVATED [None]
  - NAUSEA [None]
  - NEPHROLITHIASIS [None]
  - PAIN [None]
  - VOMITING [None]
